FAERS Safety Report 5067268-2 (Version None)
Quarter: 2006Q3

REPORT INFORMATION
  Report Type: 
  Country: None (occurrence: None)
  Receive Date: 20060727
  Receipt Date: 20060717
  Transmission Date: 20061208
  Serious: Yes (Hospitalization)
  Sender: FDA-Public Use
  Company Number: B0432126A

PATIENT
  Age: 83 Year
  Sex: Female

DRUGS (1)
  1. PAXIL [Suspect]

REACTIONS (8)
  - FANCONI SYNDROME [None]
  - GLYCOSURIA [None]
  - HYPOCALCAEMIA [None]
  - HYPOCHLORAEMIA [None]
  - HYPOKALAEMIA [None]
  - HYPOPHOSPHATAEMIA [None]
  - HYPOURICAEMIA [None]
  - INAPPROPRIATE ANTIDIURETIC HORMONE SECRETION [None]
